FAERS Safety Report 4452467-0 (Version None)
Quarter: 2004Q3

REPORT INFORMATION
  Report Type: 
  Country: None (occurrence: None)
  Receive Date: 20040916
  Receipt Date: 20040831
  Transmission Date: 20050211
  Serious: Yes (Death)
  Sender: FDA-Public Use
  Company Number: 8007164

PATIENT
  Age: 67 Year
  Sex: Female

DRUGS (8)
  1. KEPPRA [Suspect]
     Dosage: 1000 MG 2/D PO
     Route: 048
  2. MARCOUMAR [Suspect]
     Dosage: 1 DF PRN PO
     Route: 048
     Dates: start: 20040601, end: 20040714
  3. NEXIUM [Suspect]
     Dosage: 20 MG 1/D PO
     Route: 048
  4. DILTIAZEM HCL [Suspect]
     Indication: HYPERTENSION
     Dosage: 90 MG 1/D PO
     Route: 048
  5. COMILORIDE [Suspect]
     Indication: HYPERTENSION
     Dosage: 1 DF 1/D PO
     Route: 048
  6. GLUCOPHAGE [Concomitant]
  7. CALCIMAGON-D3 [Concomitant]
  8. DEXAMETHASONE [Concomitant]

REACTIONS (16)
  - ABDOMINAL PAIN UPPER [None]
  - ASTHENIA [None]
  - CHOLELITHIASIS [None]
  - CHOLESTASIS [None]
  - CUSHING'S SYNDROME [None]
  - DYSLIPIDAEMIA [None]
  - GENERAL PHYSICAL CONDITION ABNORMAL [None]
  - HEPATITIS CHOLESTATIC [None]
  - HEPATOCELLULAR DAMAGE [None]
  - HYPERCHROMIC ANAEMIA [None]
  - HYPOKALAEMIA [None]
  - IATROGENIC INJURY [None]
  - INAPPROPRIATE ANTIDIURETIC HORMONE SECRETION [None]
  - OEDEMA PERIPHERAL [None]
  - PROTHROMBIN TIME PROLONGED [None]
  - SOMNOLENCE [None]
